FAERS Safety Report 4304256-5 (Version None)
Quarter: 2004Q1

REPORT INFORMATION
  Report Type: 
  Country: None (occurrence: None)
  Receive Date: 20040225
  Receipt Date: 20040218
  Transmission Date: 20041129
  Serious: Yes (Hospitalization)
  Sender: FDA-Public Use
  Company Number: WAES 0402USA01577

PATIENT
  Age: 70 Year
  Sex: Male

DRUGS (10)
  1. ASPIRIN [Concomitant]
  2. DIGOXIN [Concomitant]
  3. FUROSEMIDE [Concomitant]
  4. ISOSORBIDE DINITRATE [Concomitant]
  5. AQUAMEPHYTON [Suspect]
     Indication: EPISTAXIS
     Route: 058
     Dates: start: 20030320, end: 20030320
  6. AQUAMEPHYTON [Suspect]
     Route: 058
     Dates: start: 20030309, end: 20030301
  7. AQUAMEPHYTON [Suspect]
     Route: 058
     Dates: start: 20030321, end: 20030321
  8. POTASSIUM (UNSPECIFIED) [Concomitant]
  9. QUINAPRIL HYDROCHLORIDE [Concomitant]
  10. WARFARIN [Suspect]
     Indication: ANTICOAGULANT THERAPY
     Dates: start: 20020202, end: 20020317

REACTIONS (6)
  - ACTIVATED PARTIAL THROMBOPLASTIN TIME PROLONGED [None]
  - DRUG TOXICITY [None]
  - EPISTAXIS [None]
  - INTERNATIONAL NORMALISED RATIO INCREASED [None]
  - PROTHROMBIN TIME PROLONGED [None]
  - TREATMENT NONCOMPLIANCE [None]
